FAERS Safety Report 4974938-0 (Version None)
Quarter: 2006Q2

REPORT INFORMATION
  Report Type: 
  Country: None (occurrence: None)
  Receive Date: 20060418
  Receipt Date: 20060411
  Transmission Date: 20061013
  Serious: Yes (Disabling, Other)
  Sender: FDA-Public Use
  Company Number: FR-RB-3123-2006

PATIENT
  Age: 30 Year
  Sex: Male
  Weight: 62 kg

DRUGS (2)
  1. BUPRENORPHINE HCL [Suspect]
     Route: 060
  2. HEROIN [Suspect]
     Indication: DRUG USE FOR UNKNOWN INDICATION
     Dosage: DOSAGE UNKNOWN
     Route: 042

REACTIONS (3)
  - DISABILITY [None]
  - INFLAMMATION [None]
  - OEDEMA PERIPHERAL [None]
